FAERS Safety Report 11261244 (Version 1)
Quarter: 2015Q3

REPORT INFORMATION
  Report Type: Spontaneous
  Country: US (occurrence: US)
  Receive Date: 20150710
  Receipt Date: 20150710
  Transmission Date: 20151125
  Serious: No
  Sender: FDA-Public Use
  Company Number: US-PURDUE-USA-2015-0121007

PATIENT
  Sex: Male

DRUGS (1)
  1. BUTRANS [Suspect]
     Active Substance: BUPRENORPHINE
     Indication: PRODUCT USED FOR UNKNOWN INDICATION
     Dosage: 10 MCG/HR, WEEKLY
     Route: 062
     Dates: start: 2014

REACTIONS (7)
  - Drug administered at inappropriate site [Unknown]
  - Headache [Unknown]
  - Application site erythema [Recovered/Resolved]
  - Product adhesion issue [Unknown]
  - Wrong technique in product usage process [Unknown]
  - Application site pruritus [Recovered/Resolved]
  - Nausea [Recovered/Resolved]
